FAERS Safety Report 11387244 (Version 1)
Quarter: 2015Q3

REPORT INFORMATION
  Report Type: Spontaneous
  Country: SE (occurrence: SE)
  Receive Date: 20150817
  Receipt Date: 20150817
  Transmission Date: 20151125
  Serious: Yes (Other)
  Sender: FDA-Public Use
  Company Number: SE-JNJFOC-20150805499

PATIENT

DRUGS (2)
  1. IPREN [Suspect]
     Active Substance: IBUPROFEN
     Indication: PRODUCT USED FOR UNKNOWN INDICATION
     Route: 065
  2. IPREN [Suspect]
     Active Substance: IBUPROFEN
     Route: 065

REACTIONS (2)
  - Drug dependence [Unknown]
  - Liver disorder [Unknown]
